FAERS Safety Report 14786647 (Version 1)
Quarter: 2018Q2

REPORT INFORMATION
  Report Type: Spontaneous
  Country: US (occurrence: US)
  Receive Date: 20180420
  Receipt Date: 20180420
  Transmission Date: 20180711
  Serious: No
  Sender: FDA-Public Use
  Company Number: US-SA-2018SA101868

PATIENT

DRUGS (9)
  1. METHOTREXATE. [Concomitant]
     Active Substance: METHOTREXATE
     Route: 065
  2. XELJANZ [Concomitant]
     Active Substance: TOFACITINIB CITRATE
     Route: 065
  3. ACTEMRA [Concomitant]
     Active Substance: TOCILIZUMAB
  4. HUMIRA [Concomitant]
     Active Substance: ADALIMUMAB
  5. COSENTYX [Concomitant]
     Active Substance: SECUKINUMAB
  6. KEVZARA [Suspect]
     Active Substance: SARILUMAB
     Route: 065
  7. ENBREL [Concomitant]
     Active Substance: ETANERCEPT
  8. ORENCIA [Concomitant]
     Active Substance: ABATACEPT
  9. ORENCIA [Concomitant]
     Active Substance: ABATACEPT

REACTIONS (1)
  - Therapeutic response decreased [Unknown]
